FAERS Safety Report 6083240-8 (Version None)
Quarter: 2009Q1

REPORT INFORMATION
  Report Type: 
  Country: None (occurrence: None)
  Receive Date: 20090213
  Receipt Date: 20090213
  Transmission Date: 20090719
  Serious: Yes (Congenital Anomaly, Other)
  Sender: FDA-Public Use
  Company Number: None

PATIENT
  Age: 82 Year
  Sex: Female
  Weight: 47.1741 kg

DRUGS (1)
  1. CLARITHROMYCIN [Suspect]
     Indication: PNEUMONIA
     Dosage: ONE TABLET BY MOUTH TWICE A DAY
     Dates: start: 20081103, end: 20081113

REACTIONS (3)
  - DYSGEUSIA [None]
  - FATIGUE [None]
  - INSOMNIA [None]
